FAERS Safety Report 16863042 (Version 3)
Quarter: 2020Q4

REPORT INFORMATION
  Report Type: Spontaneous
  Country: US (occurrence: US)
  Receive Date: 20190927
  Receipt Date: 20201116
  Transmission Date: 20210113
  Serious: Yes (Death, Hospitalization, Other)
  Sender: FDA-Public Use
  Company Number: US-GILEAD-2019-0429241

PATIENT
  Age: 53 Year
  Sex: Male
  Weight: 84.81 kg

DRUGS (21)
  1. DESCOVY [Concomitant]
     Active Substance: EMTRICITABINE\TENOFOVIR ALAFENAMIDE FUMARATE
  2. GENVOYA [Concomitant]
     Active Substance: COBICISTAT\ELVITEGRAVIR\EMTRICITABINE\TENOFOVIR ALAFENAMIDE FUMARATE
  3. ISENTRESS [Concomitant]
     Active Substance: RALTEGRAVIR POTASSIUM
  4. ISENTRESS [Concomitant]
     Active Substance: RALTEGRAVIR POTASSIUM
  5. INSULIN [Concomitant]
     Active Substance: INSULIN NOS
  6. TIVICAY [Concomitant]
     Active Substance: DOLUTEGRAVIR SODIUM
  7. ATRIPLA [Suspect]
     Active Substance: EFAVIRENZ\EMTRICITABINE\TENOFOVIR DISOPROXIL FUMARATE
     Indication: HIV INFECTION
     Dosage: UNK
     Route: 048
     Dates: start: 200608, end: 2011
  8. CARVEDILOL. [Concomitant]
     Active Substance: CARVEDILOL
  9. LIPITOR ORIFARM [Concomitant]
     Active Substance: ATORVASTATIN CALCIUM
  10. ZESTRIL [Concomitant]
     Active Substance: LISINOPRIL
  11. TRUVADA [Suspect]
     Active Substance: EMTRICITABINE\TENOFOVIR DISOPROXIL FUMARATE
     Indication: HIV INFECTION
     Dosage: UNK
     Route: 048
     Dates: start: 200607, end: 201606
  12. TRUVADA [Suspect]
     Active Substance: EMTRICITABINE\TENOFOVIR DISOPROXIL FUMARATE
     Dosage: UNK
     Route: 048
     Dates: start: 2016
  13. EMTRIVA [Concomitant]
     Active Substance: EMTRICITABINE
  14. FUZEON [Concomitant]
     Active Substance: ENFUVIRTIDE
  15. FLUORESCEIN [FLUORESCEIN SODIUM] [Concomitant]
  16. SUSTIVA [Concomitant]
     Active Substance: EFAVIRENZ
  17. FUROSEMIDE. [Concomitant]
     Active Substance: FUROSEMIDE
  18. LOSARTAN. [Concomitant]
     Active Substance: LOSARTAN
  19. LISINOPRIL. [Concomitant]
     Active Substance: LISINOPRIL
  20. ASPIRIN 81 [Concomitant]
     Active Substance: ASPIRIN
  21. PHENYLEPHRINE [Concomitant]
     Active Substance: PHENYLEPHRINE HYDROCHLORIDE

REACTIONS (8)
  - Emotional distress [Not Recovered/Not Resolved]
  - Chronic kidney disease-mineral and bone disorder [Recovered/Resolved]
  - Anxiety [Not Recovered/Not Resolved]
  - End stage renal disease [Recovered/Resolved]
  - Chronic kidney disease [Fatal]
  - Anhedonia [Not Recovered/Not Resolved]
  - Economic problem [Not Recovered/Not Resolved]
  - Pain [Not Recovered/Not Resolved]

NARRATIVE: CASE EVENT DATE: 2007
